FAERS Safety Report 7607492-5 (Version None)
Quarter: 2011Q3

REPORT INFORMATION
  Report Type: 
  Country: None (occurrence: None)
  Receive Date: 20110713
  Receipt Date: 20110701
  Transmission Date: 20111222
  Serious: Yes (Death)
  Sender: FDA-Public Use
  Company Number: GB-GENENTECH-312784

PATIENT

DRUGS (3)
  1. ACETAMINOPHEN AND CODEINE PHOSPHATE [Concomitant]
     Indication: PRODUCT USED FOR UNKNOWN INDICATION
  2. LUCENTIS [Suspect]
     Indication: PRODUCT USED FOR UNKNOWN INDICATION
  3. ALENDRONIC ACID [Concomitant]
     Indication: PRODUCT USED FOR UNKNOWN INDICATION

REACTIONS (3)
  - CARDIAC FAILURE [None]
  - CELLULITIS [None]
  - JOINT SWELLING [None]
